FAERS Safety Report 8595371-9 (Version None)
Quarter: 2012Q3

REPORT INFORMATION
  Report Type: 
  Country: None (occurrence: None)
  Receive Date: 20120807
  Receipt Date: 20120807
  Transmission Date: 20120928
  Serious: No
  Sender: FDA-Public Use
  Company Number: None

PATIENT
  Age: 66 Year
  Sex: Male
  Weight: 100 kg

DRUGS (9)
  1. LOVENOX [Concomitant]
  2. FOLIC ACID [Concomitant]
  3. VITAMIN B-12 [Concomitant]
  4. ANDROGEL [Concomitant]
  5. M.V.I. [Concomitant]
  6. ACETAMINOPHEN [Concomitant]
  7. ISOVUE-300 [Suspect]
     Indication: COMPUTERISED TOMOGRAM
     Dosage: IV
     Route: 042
     Dates: start: 20120403
  8. DEXAMETHASONE [Concomitant]
  9. CODEINE PM [Concomitant]

REACTIONS (3)
  - ERYTHEMA [None]
  - RASH MACULAR [None]
  - FLUSHING [None]
